FAERS Safety Report 6379621-5 (Version None)
Quarter: 2009Q3

REPORT INFORMATION
  Report Type: 
  Country: None (occurrence: None)
  Receive Date: 20090922
  Receipt Date: 20090922
  Transmission Date: 20100115
  Serious: Yes (Hospitalization, Other)
  Sender: FDA-Public Use
  Company Number: None

PATIENT

DRUGS (1)
  1. ZICAM UNKNOWN [Suspect]
     Indication: DRUG USE FOR UNKNOWN INDICATION
     Dosage: ^PER INSTRUCTIONS^

REACTIONS (6)
  - EYELID OEDEMA [None]
  - GAIT DISTURBANCE [None]
  - MYASTHENIA GRAVIS [None]
  - NASOPHARYNGITIS [None]
  - NEOPLASM [None]
  - SWELLING FACE [None]
